FAERS Safety Report 8790102 (Version 2)
Quarter: 2013Q3

REPORT INFORMATION
  Report Type: Spontaneous
  Country: GB (occurrence: GB)
  Receive Date: 20120917
  Receipt Date: 20130709
  Transmission Date: 20140515
  Serious: No
  Sender: FDA-Public Use
  Company Number: GB-SANOFI-AVENTIS-2012SA056741

PATIENT
  Age: 37 Year
  Sex: Female

DRUGS (2)
  1. ARAVA [Suspect]
     Indication: RHEUMATOID ARTHRITIS
     Route: 048
     Dates: start: 200701, end: 20120127
  2. BUCCASTEM [Concomitant]
     Indication: NAUSEA
     Route: 048
     Dates: start: 20120831

REACTIONS (1)
  - Exposure during pregnancy [Unknown]
